FAERS Safety Report 11340129 (Version 1)
Quarter: 2015Q3

REPORT INFORMATION
  Report Type: Spontaneous
  Country: US (occurrence: US)
  Receive Date: 20150805
  Receipt Date: 20150805
  Transmission Date: 20151125
  Serious: Yes (Other)
  Sender: FDA-Public Use
  Company Number: US-SUN PHARMACEUTICAL INDUSTRIES LTD-2015US-101153

PATIENT
  Age: 40 Year

DRUGS (1)
  1. SPIRONOLACTONE. [Suspect]
     Active Substance: SPIRONOLACTONE
     Indication: ANDROGENS DECREASED
     Dosage: UNK
     Route: 065

REACTIONS (2)
  - Androgen receptor gene overexpression [Unknown]
  - Bulbospinal muscular atrophy congenital [Unknown]
